FAERS Safety Report 20540873 (Version 1)
Quarter: 2022Q1

REPORT INFORMATION
  Report Type: Spontaneous
  Country: FR (occurrence: None)
  Receive Date: 20220302
  Receipt Date: 20220302
  Transmission Date: 20220423
  Serious: Yes (Hospitalization)
  Sender: FDA-Public Use
  Company Number: 2022A089951

PATIENT
  Age: 75 Year
  Sex: Male
  Weight: 126 kg

DRUGS (14)
  1. DAPAGLIFLOZIN [Suspect]
     Active Substance: DAPAGLIFLOZIN
     Indication: Cardiac disorder
     Route: 048
     Dates: start: 202201
  2. TOUJEO [Concomitant]
     Active Substance: INSULIN GLARGINE
     Dosage: 55 UI IN THE EVENING
  3. HUMALOG KWIKPEN [Concomitant]
     Active Substance: INSULIN LISPRO
     Dosage: 20 UI IN THE MORNING, NOON AND EVENING
  4. ATORVASTATIN [Concomitant]
     Active Substance: ATORVASTATIN
     Dosage: 40 MG IN THE EVENING
  5. PREVISCAN [Concomitant]
     Dosage: 20 MG AT A HALF TABLET IN THE EVENING
  6. RAMIPRIL [Concomitant]
     Active Substance: RAMIPRIL
     Dosage: 2.5 MG AT THE DOSAGE OF 1 TABLET IN THE MORNING AND IN THE EVENING
  7. FUROSEMIDE [Concomitant]
     Active Substance: FUROSEMIDE
     Dosage: 40 MG, 2 TABLETS IN THE MORNING AND 1 TABLET AT NOON
  8. BISOPROLOL [Concomitant]
     Active Substance: BISOPROLOL
     Dosage: 2.5 MG, 1 TABLET IN THE MORNING AND IN THE EVENING
  9. INCRUSE ELLIPTA [Concomitant]
     Active Substance: UMECLIDINIUM BROMIDE
     Dosage: 55 MICROGRAMS ONCE IN THE MORNING
  10. INNOVAIR [Concomitant]
     Active Substance: BECLOMETHASONE DIPROPIONATE\FORMOTEROL
     Dosage: 100/ 6 MICROGRAMS, 1 PUFF IN THE MORNING AND IN THE EVENING
  11. ALBUTEROL [Concomitant]
     Active Substance: ALBUTEROL
     Dosage: IF NEEDED
  12. DAFALGAN CODEINE [Concomitant]
     Active Substance: ACETAMINOPHEN\CODEINE PHOSPHATE
     Dosage: IF NEEDED
  13. CHOLECALCIFEROL [Concomitant]
     Active Substance: CHOLECALCIFEROL
     Dosage: 80000 UI
  14. FUROSEMIDE [Concomitant]
     Active Substance: FUROSEMIDE

REACTIONS (6)
  - Acute kidney injury [Recovering/Resolving]
  - Malaise [Unknown]
  - Pain in extremity [Unknown]
  - Vision blurred [Unknown]
  - Dyspnoea [Unknown]
  - Hypotension [Unknown]

NARRATIVE: CASE EVENT DATE: 20220124
